FAERS Safety Report 8722012 (Version 3)
Quarter: 2013Q1

REPORT INFORMATION
  Report Type: Spontaneous
  Country: US (occurrence: US)
  Receive Date: 20120814
  Receipt Date: 20130111
  Transmission Date: 20140127
  Serious: Yes (Hospitalization, Other)
  Sender: FDA-Public Use
  Company Number: US-BAYER-2012-081282

PATIENT
  Age: 42 Year
  Sex: Female
  Weight: 61.68 kg

DRUGS (8)
  1. YASMIN [Suspect]
     Indication: CONTRACEPTION
     Dosage: UNK
     Dates: start: 200610, end: 20080730
  2. YASMIN [Suspect]
     Indication: CONTRACEPTION
     Dosage: UNK
     Dates: start: 200808, end: 20090329
  3. YASMIN [Suspect]
     Indication: CONTRACEPTION
     Dosage: UNK
     Dates: start: 20090428, end: 20090814
  4. OCELLA [Suspect]
     Indication: CONTRACEPTION
     Dosage: UNK
     Dates: start: 20080731, end: 200808
  5. OCELLA [Suspect]
     Indication: CONTRACEPTION
     Dosage: UNK
     Dates: start: 20090330, end: 20090427
  6. MULTIVITAMINS WITH MINERALS [Concomitant]
  7. MULTIVITAMIN WITH MINERALS [Concomitant]
  8. DILAUDID [Concomitant]
     Indication: PAIN

REACTIONS (20)
  - Deep vein thrombosis [None]
  - Pulmonary embolism [None]
  - Injury [None]
  - Pain [None]
  - General physical health deterioration [None]
  - Emotional distress [None]
  - Anxiety [None]
  - Pain [None]
  - Dyspnoea [None]
  - Pleuritic pain [None]
  - Musculoskeletal pain [None]
  - Pain in extremity [None]
  - Neck pain [None]
  - Musculoskeletal chest pain [None]
  - Chest pain [None]
  - Pain in extremity [None]
  - Muscle spasms [None]
  - Amnesia [None]
  - Asthenia [None]
  - Fatigue [None]
